FAERS Safety Report 10346933 (Version 2)
Quarter: 2014Q3

REPORT INFORMATION
  Report Type: Spontaneous
  Country: US (occurrence: US)
  Receive Date: 20140729
  Receipt Date: 20140911
  Transmission Date: 20150326
  Serious: Yes (Other)
  Sender: FDA-Public Use
  Company Number: US-AMGEN-USASP2014055354

PATIENT
  Age: 67 Year
  Sex: Male
  Weight: 68.48 kg

DRUGS (6)
  1. SUTENT [Suspect]
     Active Substance: SUNITINIB MALATE
     Indication: RENAL CANCER
     Dosage: 37.5 MG, QD
     Route: 048
     Dates: start: 20120415, end: 20140627
  2. TOPROL XL [Concomitant]
     Active Substance: METOPROLOL SUCCINATE
  3. XGEVA [Suspect]
     Active Substance: DENOSUMAB
     Indication: BONE DISORDER
     Dosage: 120 MG, Q4WK
     Route: 058
     Dates: start: 20130212, end: 20140410
  4. XGEVA [Suspect]
     Active Substance: DENOSUMAB
     Indication: METASTASES TO BONE
  5. CASODEX [Concomitant]
     Active Substance: BICALUTAMIDE
     Indication: BONE DISORDER
  6. AXITINIB [Concomitant]
     Active Substance: AXITINIB
     Indication: RENAL CANCER
     Dosage: 5 MG, BID
     Route: 048
     Dates: start: 20140624

REACTIONS (8)
  - Osteonecrosis of jaw [Not Recovered/Not Resolved]
  - Toothache [Not Recovered/Not Resolved]
  - Gingival disorder [Unknown]
  - Weight decreased [Unknown]
  - Constipation [Unknown]
  - Diarrhoea [Unknown]
  - Pain in jaw [Not Recovered/Not Resolved]
  - Hypertension [Unknown]

NARRATIVE: CASE EVENT DATE: 201404
